FAERS Safety Report 9932990 (Version 1)
Quarter: 2014Q1

REPORT INFORMATION
  Report Type: Spontaneous
  Country: US (occurrence: US)
  Receive Date: 20140228
  Receipt Date: 20140228
  Transmission Date: 20141002
  Serious: Yes (Other)
  Sender: FDA-Public Use
  Company Number: US-GLAXOSMITHKLINE-A1043091A

PATIENT
  Age: 45 Year
  Sex: Female

DRUGS (5)
  1. LAMOTRIGINE [Suspect]
     Indication: EPILEPSY
     Dosage: 150MG TWICE PER DAY
     Route: 048
     Dates: start: 2005
  2. SEROQUEL [Concomitant]
  3. ZOLOFT [Concomitant]
  4. LORTAB [Concomitant]
  5. KEPPRA [Concomitant]

REACTIONS (2)
  - Pancreatitis [Recovered/Resolved]
  - Laboratory test abnormal [Recovered/Resolved]
